FAERS Safety Report 5916706-9 (Version None)
Quarter: 2008Q4

REPORT INFORMATION
  Report Type: 
  Country: None (occurrence: None)
  Receive Date: 20081013
  Receipt Date: 20081008
  Transmission Date: 20090506
  Serious: Yes (Hospitalization, Congenital Anomaly)
  Sender: FDA-Public Use
  Company Number: FR-WYE-G02310008

PATIENT
  Sex: Male

DRUGS (7)
  1. EFFEXOR [Suspect]
     Route: 064
  2. EFFEXOR [Suspect]
     Dosage: REPORTEDLY 1.5 CAPSULE OF 75 MG TOTAL DAILY (112.5 MG)
     Route: 064
  3. HEROIN [Suspect]
     Dosage: UNKNOWN; OCCASIONAL INTAKES
     Route: 064
  4. PROFENID [Suspect]
     Dosage: UNKNOWN; OCCASIONAL INTAKES
     Route: 064
     Dates: start: 20080101, end: 20080101
  5. SUBUTEX [Suspect]
     Route: 064
     Dates: end: 20080601
  6. SUBUTEX [Suspect]
     Route: 064
     Dates: start: 20080601
  7. XANAX [Suspect]
     Dosage: GENERALLY 0.75-1 MG TOTAL DAILY, BUT SOMETIMES 1.75 MG TOTAL DAILY
     Route: 064

REACTIONS (3)
  - DRUG EXPOSURE DURING PREGNANCY [None]
  - DRUG WITHDRAWAL SYNDROME NEONATAL [None]
  - EXOMPHALOS [None]
